FAERS Safety Report 8442972 (Version 4)
Quarter: 2012Q4

REPORT INFORMATION
  Report Type: 
  Country: US (occurrence: US)
  Receive Date: 20120306
  Receipt Date: 20120910
  Transmission Date: 20130627
  Serious: Yes (Hospitalization)
  Sender: FDA-Public Use
  Company Number: US-BAYER-2012-019863

PATIENT
  Age: 31 Year
  Sex: Female
  Weight: 78 kg

DRUGS (15)
  1. YASMIN [Suspect]
     Indication: CONTRACEPTION
     Dates: start: 20030701, end: 20070607
  2. YASMIN [Suspect]
     Indication: DYSMENORRHOEA
  3. NEXIUM [Concomitant]
     Dosage: UNK
     Dates: start: 2005
  4. VALTREX [Concomitant]
     Dosage: 500 mg, BID
     Route: 048
  5. MERIDIA [Concomitant]
     Dosage: 15 mg, 1 daily
     Route: 048
  6. TYLENOL #3 [Concomitant]
     Indication: PAIN
     Dosage: one tab q4-6 hours as needed
     Route: 048
  7. LOW-OGESTREL [Concomitant]
     Dosage: 0.3-30mcg
     Route: 048
  8. METOPROLOL [Concomitant]
  9. SYNTHROID [Concomitant]
  10. FLAGYL [Concomitant]
  11. BENTYL [Concomitant]
  12. ACYCLOVIR [ACICLOVIR] [Concomitant]
     Indication: HERPES SIMPLEX
  13. ATIVAN [Concomitant]
     Indication: BEREAVEMENT
  14. ATIVAN [Concomitant]
     Indication: ANXIETY
  15. SEASONIQUE [Concomitant]
     Indication: MENSTRUATION IRREGULAR

REACTIONS (5)
  - Cholecystectomy [None]
  - Biliary dyskinesia [None]
  - Pain [None]
  - Pain [None]
  - Mental disorder [None]
